FAERS Safety Report 7986212-9 (Version None)
Quarter: 2011Q4

REPORT INFORMATION
  Report Type: 
  Country: None (occurrence: None)
  Receive Date: 20111216
  Receipt Date: 20111214
  Transmission Date: 20120403
  Serious: Yes (Hospitalization)
  Sender: FDA-Public Use
  Company Number: US-GLAXOSMITHKLINE-A0958217A

PATIENT
  Age: 51 Year
  Sex: Female

DRUGS (3)
  1. FLOLAN [Suspect]
     Indication: PULMONARY ARTERIAL HYPERTENSION
     Dosage: 69NGKM PER DAY
     Route: 042
     Dates: start: 20090202
  2. REVATIO [Concomitant]
     Dosage: 20MG THREE TIMES PER DAY
  3. TRACLEER [Concomitant]
     Dosage: 125MG CUMULATIVE DOSE

REACTIONS (1)
  - ASCITES [None]
